FAERS Safety Report 8062485-1 (Version None)
Quarter: 2012Q1

REPORT INFORMATION
  Report Type: 
  Country: None (occurrence: None)
  Receive Date: 20120113
  Receipt Date: 20120106
  Transmission Date: 20120608
  Serious: Yes (Hospitalization, Other)
  Sender: FDA-Public Use
  Company Number: 2012MA000369

PATIENT
  Age: 82 Year
  Sex: Female

DRUGS (9)
  1. BROMAZEPAM [Concomitant]
  2. CAFFEINATED ACETAMINOPHEN [Concomitant]
  3. ASPIRIN [Concomitant]
  4. AMITRIPTYLINE LYSINE [Concomitant]
  5. TRIMETAZIDINE [Concomitant]
  6. DICLOFENAC EPOLAMINE [Concomitant]
  7. OMEPRAZOLE [Concomitant]
  8. TRAMADOL HYDROCHLORIDE [Suspect]
     Dosage: 100 MG;BID
  9. RISPERIDONE [Concomitant]

REACTIONS (8)
  - HYPOGLYCAEMIA [None]
  - ASTHENIA [None]
  - SOMNOLENCE [None]
  - PSYCHOMOTOR RETARDATION [None]
  - RHABDOMYOLYSIS [None]
  - HYPERSOMNIA [None]
  - FALL [None]
  - WEIGHT DECREASED [None]
